FAERS Safety Report 24085766 (Version 1)
Quarter: 2024Q3

REPORT INFORMATION
  Report Type: Spontaneous
  Country: IT (occurrence: IT)
  Receive Date: 20240712
  Receipt Date: 20240712
  Transmission Date: 20241017
  Serious: Yes (Hospitalization)
  Sender: ELI LILLY AND CO
  Company Number: IT-ELI_LILLY_AND_COMPANY-IT202407003782

PATIENT
  Age: 61 Year
  Sex: Male
  Weight: 63 kg

DRUGS (3)
  1. GEMCITABINE HYDROCHLORIDE [Suspect]
     Active Substance: GEMCITABINE HYDROCHLORIDE
     Indication: Pleural mesothelioma
     Dosage: 1000 MG/M2, CYCLICAL (1000 MG/M2)
     Route: 065
     Dates: start: 20240517
  2. TADALAFIL [Suspect]
     Active Substance: TADALAFIL
     Indication: Benign prostatic hyperplasia
     Dosage: UNK UNK, UNKNOWN
     Route: 065
     Dates: start: 202206
  3. TADALAFIL [Suspect]
     Active Substance: TADALAFIL
     Indication: Erectile dysfunction

REACTIONS (3)
  - Hypotension [Unknown]
  - Asthenia [Unknown]
  - Panniculitis [Unknown]

NARRATIVE: CASE EVENT DATE: 20240611
